FAERS Safety Report 9061674 (Version 2)
Quarter: 2013Q2

REPORT INFORMATION
  Report Type: Spontaneous
  Country: BR (occurrence: BR)
  Receive Date: 20130204
  Receipt Date: 20130415
  Transmission Date: 20140414
  Serious: Yes (Other)
  Sender: FDA-Public Use
  Company Number: PHHY2013BR009574

PATIENT
  Sex: Female
  Weight: 71 kg

DRUGS (6)
  1. ACLASTA [Suspect]
     Indication: OSTEOPOROSIS
     Dosage: 1 APPLICATION PER YEAR
     Route: 042
     Dates: start: 20121204
  2. GALVUS [Suspect]
     Indication: DIABETES MELLITUS
     Dosage: 1 TABLET A DAY
     Route: 048
  3. LOSARTAN [Concomitant]
     Indication: HYPERTENSION
     Dosage: UNK UKN, UNK
  4. AZUKON [Concomitant]
     Indication: DIABETES MELLITUS
     Dosage: 1 TABLET IN THE MORNING
  5. METFORMIN [Concomitant]
     Dosage: 3 TABLETS A DAY
     Route: 048
  6. CALCIUM D3 VIT [Concomitant]
     Dosage: 1 TABLET A DAY
     Route: 048

REACTIONS (5)
  - Fall [Unknown]
  - Hiatus hernia [Recovering/Resolving]
  - Arthralgia [Recovering/Resolving]
  - Local swelling [Recovering/Resolving]
  - Musculoskeletal pain [Recovering/Resolving]
